FAERS Safety Report 21956443 (Version 1)
Quarter: 2023Q1

REPORT INFORMATION
  Report Type: Report from Study
  Country: US (occurrence: US)
  Receive Date: 20230206
  Receipt Date: 20230206
  Transmission Date: 20230418
  Serious: Yes (Other)
  Sender: FDA-Public Use
  Company Number: US-ABBVIE-4295510

PATIENT
  Sex: Female

DRUGS (2)
  1. HUMIRA [Suspect]
     Active Substance: ADALIMUMAB
     Indication: Rheumatoid arthritis
     Route: 058
     Dates: start: 20210601
  2. PROLIA [Concomitant]
     Active Substance: DENOSUMAB
     Indication: Product used for unknown indication
     Dosage: INJECTION EVERY 6 MONTHS

REACTIONS (8)
  - Retinal tear [Unknown]
  - Osteoarthritis [Unknown]
  - Fibromyalgia [Unknown]
  - Malaise [Unknown]
  - Dry eye [Unknown]
  - Muscle spasms [Unknown]
  - Fatigue [Unknown]
  - Pain in extremity [Unknown]
